FAERS Safety Report 22090491 (Version 2)
Quarter: 2023Q1

REPORT INFORMATION
  Report Type: Spontaneous
  Country: GB (occurrence: GB)
  Receive Date: 20230313
  Receipt Date: 20230323
  Transmission Date: 20230418
  Serious: Yes (Hospitalization)
  Sender: FDA-Public Use
  Company Number: GB-ALLERGAN-2307536US

PATIENT
  Sex: Female

DRUGS (1)
  1. BOTOX [Suspect]
     Active Substance: ONABOTULINUMTOXINA
     Indication: Product used for unknown indication
     Dosage: UNK, SINGLE

REACTIONS (8)
  - Plastic surgery [Recovered/Resolved]
  - Breast swelling [Not Recovered/Not Resolved]
  - Breast injury [Recovered/Resolved]
  - Haemorrhage [Recovered/Resolved]
  - Mass [Unknown]
  - Pain [Unknown]
  - Thrombosis [Unknown]
  - Cutis laxa [Unknown]
